APPROVED DRUG PRODUCT: GLYBURIDE AND METFORMIN HYDROCHLORIDE
Active Ingredient: GLYBURIDE; METFORMIN HYDROCHLORIDE
Strength: 2.5MG;500MG
Dosage Form/Route: TABLET;ORAL
Application: A077870 | Product #002 | TE Code: AB
Applicant: AUROBINDO PHARMA LTD
Approved: Nov 14, 2007 | RLD: No | RS: Yes | Type: RX